FAERS Safety Report 6530293-6 (Version None)
Quarter: 2010Q1

REPORT INFORMATION
  Report Type: 
  Country: None (occurrence: None)
  Receive Date: 20100107
  Receipt Date: 20091221
  Transmission Date: 20100710
  Serious: Yes (Death)
  Sender: FDA-Public Use
  Company Number: GB-NOVOPROD-302563

PATIENT
  Age: 73 Year
  Sex: Male

DRUGS (1)
  1. NOVOSEVEN [Suspect]
     Indication: GASTROINTESTINAL HAEMORRHAGE
     Dosage: 90 UG/KG REPEATED AT 3 HOUR INTERVALS X5

REACTIONS (1)
  - MYOCARDIAL INFARCTION [None]
